FAERS Safety Report 8410340-7 (Version None)
Quarter: 2012Q2

REPORT INFORMATION
  Report Type: 
  Country: None (occurrence: None)
  Receive Date: 20120529
  Receipt Date: 20060228
  Transmission Date: 20120825
  Serious: Yes (Hospitalization)
  Sender: FDA-Public Use
  Company Number: 15691-USA-06-0632

PATIENT
  Age: 76 Year
  Sex: Male

DRUGS (18)
  1. WARFARIN SODIUM [Concomitant]
  2. ALBUTEROL [Concomitant]
  3. TORSEMIDE [Concomitant]
  4. ALFUZOSIN (ALFUZOSIN) [Concomitant]
  5. LISINOPRIL [Concomitant]
  6. HYDROXYZINE [Concomitant]
  7. FINASTERIDE [Concomitant]
  8. CARVEDILOL [Concomitant]
  9. RANITIDINE HYDROCHLORIDE [Concomitant]
  10. IPRATROPIUM BROMIDE [Concomitant]
  11. ISOSORBIDE DINITRATE [Concomitant]
  12. BUSPIRONE HCL [Concomitant]
  13. SINEMET /NET/ (LEVODOPA, CARBIDOPA) [Concomitant]
  14. TOLVAPTAN (TOLVAPTAN(V4.1)) 30MG [Suspect]
     Indication: CARDIAC FAILURE CONGESTIVE
     Dosage: 30 MG, QD, ORAL
     Route: 048
     Dates: start: 20040514
  15. INSULIN (INSULIN) [Concomitant]
  16. SIMVASTATIN [Concomitant]
  17. DIGOXIN [Concomitant]
  18. ADVAIR HFA [Concomitant]

REACTIONS (5)
  - WEIGHT DECREASED [None]
  - PLEURAL EFFUSION [None]
  - CARDIAC FAILURE CONGESTIVE [None]
  - CONDITION AGGRAVATED [None]
  - DYSPNOEA PAROXYSMAL NOCTURNAL [None]
